FAERS Safety Report 4640160-0 (Version None)
Quarter: 2005Q2

REPORT INFORMATION
  Report Type: 
  Country: None (occurrence: None)
  Receive Date: 20050419
  Receipt Date: 20050408
  Transmission Date: 20051028
  Serious: Yes (Hospitalization)
  Sender: FDA-Public Use
  Company Number: TPA2005A00400

PATIENT
  Age: 73 Year
  Sex: Male
  Weight: 95.2554 kg

DRUGS (4)
  1. ACTOS [Suspect]
     Indication: DIABETES MELLITUS NON-INSULIN-DEPENDENT
     Dosage: 15 MG, 1 IN 1 D, PER ORAL
     Route: 048
     Dates: start: 20040408
  2. NOVOLOG 70/30 (NOVOLOG MIX) [Concomitant]
  3. MICARDIS [Concomitant]
  4. FLOMAX [Concomitant]

REACTIONS (3)
  - ARTERIAL OCCLUSIVE DISEASE [None]
  - CARDIAC DISORDER [None]
  - WEIGHT INCREASED [None]
